FAERS Safety Report 7136705-1 (Version None)
Quarter: 2010Q4

REPORT INFORMATION
  Report Type: 
  Country: None (occurrence: None)
  Receive Date: 20101206
  Receipt Date: 20100106
  Transmission Date: 20110411
  Serious: Yes (Death, Hospitalization)
  Sender: FDA-Public Use
  Company Number: US-ACTELION-A-NJ2007-18290

PATIENT
  Sex: Male

DRUGS (2)
  1. TRACLEER [Suspect]
     Indication: PULMONARY ARTERIAL HYPERTENSION
     Dosage: UNK
     Route: 048
     Dates: start: 20070710, end: 20090914
  2. AMBRISENTAN [Suspect]

REACTIONS (4)
  - BACK PAIN [None]
  - DEATH [None]
  - DYSPNOEA [None]
  - FATIGUE [None]
